FAERS Safety Report 9140510 (Version 1)
Quarter: 2013Q1

REPORT INFORMATION
  Report Type: Report from Study
  Country: US (occurrence: US)
  Receive Date: 20130305
  Receipt Date: 20130305
  Transmission Date: 20140127
  Serious: Yes (Hospitalization)
  Sender: FDA-Public Use
  Company Number: US-ABBOTT-13P-163-1056415-00

PATIENT
  Sex: Female
  Weight: 113.5 kg

DRUGS (11)
  1. HUMIRA [Suspect]
     Indication: CROHN^S DISEASE
     Dates: start: 200910, end: 201001
  2. HUMIRA [Suspect]
     Dates: start: 201110
  3. ZICTOZA [Concomitant]
     Indication: DIABETES MELLITUS
  4. TRI-EST [Concomitant]
     Indication: HOT FLUSH
  5. LISINOPRIL [Concomitant]
     Indication: HYPERTENSION
  6. MELOXICAM [Concomitant]
     Indication: INFLAMMATION
  7. SPIRONOLACTONE [Concomitant]
     Indication: HAIR DISORDER
  8. SPIRONOLACTONE [Concomitant]
     Indication: OEDEMA PERIPHERAL
  9. ZOPIDEM TARTRATE [Concomitant]
     Indication: INSOMNIA
  10. TRAMADOL [Concomitant]
     Indication: PAIN
  11. TREXIMET [Concomitant]
     Indication: MIGRAINE

REACTIONS (9)
  - Small intestinal obstruction [Recovered/Resolved]
  - Polycystic ovaries [Recovered/Resolved]
  - Smear cervix abnormal [Recovered/Resolved]
  - Abdominal pain upper [Recovered/Resolved]
  - Abdominal pain lower [Recovered/Resolved]
  - Urticaria [Recovered/Resolved]
  - Abasia [Recovering/Resolving]
  - Arthropathy [Recovering/Resolving]
  - Crohn^s disease [Not Recovered/Not Resolved]
